FAERS Safety Report 5855597-1 (Version None)
Quarter: 2008Q3

REPORT INFORMATION
  Report Type: 
  Country: None (occurrence: None)
  Receive Date: 20080821
  Receipt Date: 20080808
  Transmission Date: 20090109
  Serious: Yes (Death)
  Sender: FDA-Public Use
  Company Number: 2008BI020667

PATIENT
  Sex: Female

DRUGS (3)
  1. TYSABRI [Suspect]
     Indication: MULTIPLE SCLEROSIS
     Dosage: 300 MG; QM; V
     Route: 042
     Dates: start: 20070815, end: 20071217
  2. AVONEX [Concomitant]
  3. COPAXONE [Concomitant]

REACTIONS (1)
  - COMPLETED SUICIDE [None]
